FAERS Safety Report 18914945 (Version 1)
Quarter: 2021Q1

REPORT INFORMATION
  Report Type: Spontaneous
  Country: US (occurrence: US)
  Receive Date: 20210218
  Receipt Date: 20210218
  Transmission Date: 20210420
  Serious: No
  Sender: FDA-Public Use
  Company Number: None

PATIENT
  Age: 46 Year
  Sex: Female
  Weight: 81 kg

DRUGS (1)
  1. MONISTAT 3 [Suspect]
     Active Substance: MICONAZOLE NITRATE
     Indication: FUNGAL INFECTION
     Dosage: ?          QUANTITY:1 SUPPOSITORY(IES);?
     Route: 067
     Dates: start: 20210217, end: 20210218

REACTIONS (6)
  - Insomnia [None]
  - Dysuria [None]
  - Vulvovaginal swelling [None]
  - Vulvovaginal pain [None]
  - Vulvovaginal burning sensation [None]
  - Vulvovaginal discomfort [None]

NARRATIVE: CASE EVENT DATE: 20210218
